FAERS Safety Report 5085317-2 (Version None)
Quarter: 2006Q3

REPORT INFORMATION
  Report Type: 
  Country: None (occurrence: None)
  Receive Date: 20060817
  Receipt Date: 20060804
  Transmission Date: 20061208
  Serious: Yes (Hospitalization)
  Sender: FDA-Public Use
  Company Number: 2006066290

PATIENT
  Sex: 0

DRUGS (1)
  1. ZITHROMAX [Suspect]
     Dosage: INTRAMUSCULAR
     Route: 030
     Dates: start: 20060517

REACTIONS (2)
  - INCORRECT ROUTE OF DRUG ADMINISTRATION [None]
  - INJECTION SITE PAIN [None]
